FAERS Safety Report 15001723 (Version 1)
Quarter: 2018Q2

REPORT INFORMATION
  Report Type: Spontaneous
  Country: DE (occurrence: DE)
  Receive Date: 20180612
  Receipt Date: 20180612
  Transmission Date: 20180711
  Serious: Yes (Hospitalization)
  Sender: FDA-Public Use
  Company Number: DE-TEVA-2018-DE-905258

PATIENT
  Age: 77 Year
  Sex: Male

DRUGS (13)
  1. ZYTIGA [Suspect]
     Active Substance: ABIRATERONE ACETATE
     Dosage: 250 MG, 1-0-0-0
     Route: 065
  2. THEOPHYLLINE [Concomitant]
     Active Substance: THEOPHYLLINE ANHYDROUS
     Dosage: 300 MG, 1-0-0-0
     Route: 065
  3. TRAMADOL. [Concomitant]
     Active Substance: TRAMADOL
     Dosage: 50 MG, NEED
     Route: 065
  4. NIFEDIPINE. [Concomitant]
     Active Substance: NIFEDIPINE
     Dosage: 5 MG, 1-0-0-0
     Route: 065
  5. NITRENDIPINE [Concomitant]
     Active Substance: NITRENDIPINE
     Dosage: 10 MG, 1-0-0-0
     Route: 065
  6. PROTAPHANE [Concomitant]
     Active Substance: INSULIN HUMAN
     Dosage: 15 IE, 1-0-0-0
     Route: 065
  7. ATROVENT [Concomitant]
     Active Substance: IPRATROPIUM BROMIDE
     Dosage: 1-1-1-0
     Route: 065
  8. METAMIZOLE [Concomitant]
     Active Substance: METAMIZOLE
     Dosage: 500 MG, NEED
     Route: 065
  9. SULTANOL [Concomitant]
     Active Substance: ALBUTEROL SULFATE
     Dosage: 1-1-1-0
     Route: 065
  10. ACTRAPID [Concomitant]
     Active Substance: INSULIN HUMAN
     Route: 065
  11. PREDNISOLONE. [Suspect]
     Active Substance: PREDNISOLONE
     Dosage: 1-0-1-0
     Route: 065
  12. BRIMICA [Concomitant]
     Active Substance: ACLIDINIUM BROMIDE\FORMOTEROL FUMARATE
     Dosage: 1-0-1-0
     Route: 065
  13. ACC [Concomitant]
     Active Substance: ACETYLCYSTEINE
     Dosage: 600 MG, 1-0-0-0
     Route: 065

REACTIONS (4)
  - General physical health deterioration [Unknown]
  - Localised infection [Unknown]
  - Swelling face [Unknown]
  - Systemic infection [Unknown]
